FAERS Safety Report 9393369 (Version 2)
Quarter: 2013Q3

REPORT INFORMATION
  Report Type: Spontaneous
  Country: JP (occurrence: JP)
  Receive Date: 20130710
  Receipt Date: 20130806
  Transmission Date: 20140515
  Serious: Yes (Hospitalization, Disabling)
  Sender: FDA-Public Use
  Company Number: JP-ASTRAZENECA-2013SE24938

PATIENT
  Age: 29681 Day
  Sex: Male
  Weight: 56 kg

DRUGS (12)
  1. NEXIUM [Suspect]
     Indication: GASTROOESOPHAGEAL REFLUX DISEASE
     Route: 048
     Dates: start: 20130213, end: 20130409
  2. GANATON [Concomitant]
     Indication: GASTRITIS
     Route: 048
     Dates: start: 20071211
  3. SEDIEL [Concomitant]
     Indication: GASTRITIS
     Route: 048
     Dates: start: 20081118
  4. ITOROL [Concomitant]
     Indication: ANGINA PECTORIS
     Route: 048
     Dates: start: 20010710
  5. PLETAAL [Concomitant]
     Indication: ANGINA PECTORIS
     Route: 048
     Dates: start: 19990603
  6. ZYLORIC [Concomitant]
     Indication: HYPERURICAEMIA
     Route: 048
     Dates: start: 19991026
  7. BAYASPIRIN [Concomitant]
     Indication: ANGINA PECTORIS
     Route: 048
     Dates: start: 20010710
  8. ARTIST [Concomitant]
     Indication: ANGINA PECTORIS
     Route: 048
     Dates: start: 20070222
  9. LIPITOR [Concomitant]
     Indication: HYPERLIPIDAEMIA
     Route: 048
     Dates: start: 20040330
  10. RIZE [Concomitant]
     Indication: ANXIETY DISORDER
     Route: 048
     Dates: start: 20070222
  11. KARY UNI [Concomitant]
     Indication: CATARACT
     Route: 047
     Dates: start: 2007
  12. HYALEIN [Concomitant]
     Indication: CATARACT
     Route: 047
     Dates: start: 2007

REACTIONS (1)
  - Interstitial lung disease [Not Recovered/Not Resolved]
